FAERS Safety Report 21907689 (Version 1)
Quarter: 2023Q1

REPORT INFORMATION
  Report Type: Report from Study
  Country: CN (occurrence: CN)
  Receive Date: 20230125
  Receipt Date: 20230125
  Transmission Date: 20230417
  Serious: Yes (Death, Other)
  Sender: FDA-Public Use
  Company Number: CN-Accord-297862

PATIENT
  Age: 65 Year
  Sex: Female

DRUGS (2)
  1. AZACITIDINE [Suspect]
     Active Substance: AZACITIDINE
     Indication: Acute myeloid leukaemia
     Dosage: AT 2-3 LOCATIONS FOR 7 DAYS
     Route: 058
  2. VENETOCLAX [Suspect]
     Active Substance: VENETOCLAX
     Indication: Acute myeloid leukaemia
     Dosage: 200 MG ON THE SECOND DAY; 400  MG FROM THE THIRD DAY

REACTIONS (6)
  - Nausea [Unknown]
  - Granulocytopenia [Fatal]
  - Stenotrophomonas infection [Fatal]
  - Pneumonia [Fatal]
  - Intra-abdominal haemorrhage [Fatal]
  - Thrombocytopenia [Unknown]
